FAERS Safety Report 5914430-X (Version None)
Quarter: 2008Q4

REPORT INFORMATION
  Report Type: 
  Country: None (occurrence: None)
  Receive Date: 20081009
  Receipt Date: 20081001
  Transmission Date: 20090506
  Serious: Yes (Other)
  Sender: FDA-Public Use
  Company Number: GB-MERCK-0805GBR00068

PATIENT
  Age: 63 Year
  Sex: Male

DRUGS (4)
  1. ZOCOR [Suspect]
     Indication: HYPERCHOLESTEROLAEMIA
     Route: 048
     Dates: start: 20070501, end: 20070701
  2. ZOCOR [Suspect]
     Route: 048
     Dates: start: 20070101, end: 20070101
  3. LISINOPRIL [Concomitant]
     Route: 065
     Dates: start: 20060401
  4. METFORMIN [Concomitant]
     Route: 065
     Dates: start: 20060401

REACTIONS (1)
  - THROMBOCYTOPENIA [None]
